FAERS Safety Report 12548750 (Version 2)
Quarter: 2016Q3

REPORT INFORMATION
  Report Type: Spontaneous
  Country: CN (occurrence: CN)
  Receive Date: 20160712
  Receipt Date: 20160715
  Transmission Date: 20161109
  Serious: Yes (Death, Hospitalization)
  Sender: FDA-Public Use
  Company Number: CN-SA-2016SA126878

PATIENT
  Age: 30 Year
  Sex: Female
  Weight: 44 kg

DRUGS (3)
  1. THYMOGLOBULINE [Suspect]
     Active Substance: LAPINE T-LYMPHOCYTE IMMUNE GLOBULIN
     Indication: APLASTIC ANAEMIA
     Dosage: 9.88MG/KG TOTALLY 17 VIALS
     Route: 065
     Dates: start: 20160614
  2. BUSULFEX [Concomitant]
     Active Substance: BUSULFAN
     Dates: start: 20160614
  3. CYCLOPHOSPHAMIDE. [Concomitant]
     Active Substance: CYCLOPHOSPHAMIDE
     Dates: start: 20160614

REACTIONS (7)
  - Engraftment syndrome [Not Recovered/Not Resolved]
  - Respiratory failure [Fatal]
  - Lung infection [Not Recovered/Not Resolved]
  - Pyrexia [Not Recovered/Not Resolved]
  - Pulmonary alveolar haemorrhage [Fatal]
  - Cardiac failure [Fatal]
  - Dyspnoea [Not Recovered/Not Resolved]

NARRATIVE: CASE EVENT DATE: 20160702
